FAERS Safety Report 5417905-5 (Version None)
Quarter: 2007Q3

REPORT INFORMATION
  Report Type: 
  Country: None (occurrence: None)
  Receive Date: 20070817
  Receipt Date: 20070813
  Transmission Date: 20080115
  Serious: Yes (Hospitalization)
  Sender: FDA-Public Use
  Company Number: GB-BRISTOL-MYERS SQUIBB COMPANY-13875927

PATIENT
  Age: 58 Year
  Sex: Male

DRUGS (7)
  1. PRAVASTATIN SODIUM [Suspect]
  2. WARFARIN SODIUM [Suspect]
     Indication: MITRAL VALVE REPLACEMENT
  3. AMLODIPINE BESYLATE [Suspect]
  4. SIMVASTATIN [Suspect]
     Indication: HYPERCHOLESTEROLAEMIA
     Route: 048
  5. BISOPROLOL [Concomitant]
  6. RAMIPRIL [Concomitant]
  7. SPIRONOLACTONE [Concomitant]

REACTIONS (5)
  - DRUG INTERACTION [None]
  - GUILLAIN-BARRE SYNDROME [None]
  - INTERNATIONAL NORMALISED RATIO INCREASED [None]
  - RECTAL HAEMORRHAGE [None]
  - RENAL FAILURE [None]
